FAERS Safety Report 7733988-1 (Version None)
Quarter: 2011Q3

REPORT INFORMATION
  Report Type: 
  Country: None (occurrence: None)
  Receive Date: 20110907
  Receipt Date: 20110831
  Transmission Date: 20111222
  Serious: Yes (Death)
  Sender: FDA-Public Use
  Company Number: US-ROCHE-789930

PATIENT
  Sex: Female

DRUGS (11)
  1. OMEPRAZOLE [Concomitant]
     Route: 048
     Dates: start: 20101207
  2. POTASSIUM CHLORIDE [Concomitant]
     Route: 048
     Dates: start: 20101207
  3. PRAVACHOL [Concomitant]
     Route: 048
     Dates: start: 20101207
  4. CELL CEPT [Suspect]
     Route: 048
     Dates: start: 20101207
  5. RAPAMUNE [Concomitant]
     Route: 048
     Dates: start: 20101028
  6. PREDNISONE [Concomitant]
     Route: 048
     Dates: start: 20101207
  7. CARVEDILOL [Concomitant]
     Route: 048
     Dates: start: 20101207
  8. FUROSEMIDE [Concomitant]
     Route: 048
     Dates: start: 20101207
  9. FOSAMAX [Concomitant]
     Route: 048
     Dates: start: 20101207
  10. NYSTATIN [Concomitant]
     Route: 048
     Dates: start: 20110114
  11. ASPIRIN [Concomitant]
     Route: 048
     Dates: start: 20101207

REACTIONS (1)
  - CARDIAC ARREST [None]
